FAERS Safety Report 5442799-1 (Version None)
Quarter: 2007Q3

REPORT INFORMATION
  Report Type: 
  Country: None (occurrence: None)
  Receive Date: 20070904
  Receipt Date: 20070816
  Transmission Date: 20080115
  Serious: No
  Sender: FDA-Public Use
  Company Number: US-BOEHRINGER INGELHEIM PHARMACEUTICALS, INC.-2007-BP-19357BP

PATIENT
  Sex: Female

DRUGS (2)
  1. SPIRIVA [Suspect]
     Indication: BRONCHIAL DISORDER
     Route: 055
     Dates: start: 20070725, end: 20070808
  2. LEVOTHROID [Concomitant]
     Indication: HYPOTHYROIDISM

REACTIONS (3)
  - OESOPHAGEAL PAIN [None]
  - PHARYNGOLARYNGEAL PAIN [None]
  - PRODUCTIVE COUGH [None]
